FAERS Safety Report 8739951 (Version 4)
Quarter: 2013Q4

REPORT INFORMATION
  Report Type: Spontaneous
  Country: FR (occurrence: FR)
  Receive Date: 20120823
  Receipt Date: 20131031
  Transmission Date: 20140711
  Serious: Yes (Hospitalization)
  Sender: FDA-Public Use
  Company Number: FR-009507513-1208FRA008809

PATIENT
  Age: 83 Year
  Sex: Female
  Weight: 62.4 kg

DRUGS (11)
  1. VELMETIA [Suspect]
     Indication: TYPE 2 DIABETES MELLITUS
     Dosage: 1 DF, BID
     Route: 048
     Dates: start: 201201, end: 20120723
  2. AMAREL [Suspect]
     Indication: TYPE 2 DIABETES MELLITUS
     Dosage: 1 MG, QD
     Route: 048
  3. COAPROVEL [Suspect]
     Indication: HYPERTENSION
     Dosage: 1 DF, QD
     Route: 048
  4. PREVISCAN [Suspect]
     Indication: ATRIAL FIBRILLATION
     Dosage: 15 MG, BID
     Route: 048
     Dates: start: 20120622
  5. TAHOR [Suspect]
     Indication: HYPERCHOLESTEROLAEMIA
     Dosage: 10 MG, QD
     Route: 048
  6. LASILIX [Suspect]
     Indication: HYPERTENSION
     Dosage: 40 MG, QD
     Route: 048
  7. LAROXYL [Suspect]
     Indication: DEPRESSION
     Dosage: 10 DF, QD
     Route: 048
  8. NEBILOX [Concomitant]
     Dosage: UNK
     Route: 048
  9. SMECTA [Concomitant]
     Dosage: UNK
     Route: 048
  10. METEOXANE (AMOBARBITAL (+) ATROPINE (+) DIMETHICONE (+) HYOSCYAMINE) [Concomitant]
     Dosage: UNK
     Route: 048
  11. CELLUVISC [Concomitant]
     Dosage: UNK

REACTIONS (6)
  - Pancreatitis [Recovering/Resolving]
  - Renal failure acute [Unknown]
  - Hyperlactacidaemia [Recovered/Resolved]
  - Renal tubular necrosis [Recovering/Resolving]
  - Blood alkaline phosphatase increased [Not Recovered/Not Resolved]
  - Gamma-glutamyltransferase increased [Not Recovered/Not Resolved]
